FAERS Safety Report 6107661-X (Version None)
Quarter: 2009Q1

REPORT INFORMATION
  Report Type: 
  Country: None (occurrence: None)
  Receive Date: 20090309
  Receipt Date: 20090224
  Transmission Date: 20090719
  Serious: Yes (Other)
  Sender: FDA-Public Use
  Company Number: CH-BAYER-200914428GPV

PATIENT
  Age: 57 Year
  Sex: Female

DRUGS (4)
  1. ASPIRIN [Suspect]
     Indication: ARTERIOSCLEROSIS
  2. VOLTAREN [Suspect]
     Indication: OSTEOARTHRITIS
     Route: 065
  3. BONIVA [Concomitant]
     Indication: OSTEOPENIA
     Route: 065
  4. CALCIMAGON D3 [Concomitant]
     Indication: OSTEOPENIA

REACTIONS (7)
  - ABDOMINAL PAIN [None]
  - ANAEMIA [None]
  - COLONIC STENOSIS [None]
  - CONSTIPATION [None]
  - GASTROINTESTINAL ULCER [None]
  - OEDEMA [None]
  - VOMITING [None]
